FAERS Safety Report 9099839 (Version 1)
Quarter: 2013Q1

REPORT INFORMATION
  Report Type: Spontaneous
  Country: US (occurrence: US)
  Receive Date: 20130213
  Receipt Date: 20130213
  Transmission Date: 20140127
  Serious: No
  Sender: FDA-Public Use
  Company Number: US-VERTEX PHARMACEUTICALS INC.-2013-001943

PATIENT
  Age: 52 Year
  Sex: Male

DRUGS (7)
  1. INCIVEK [Suspect]
     Indication: HEPATITIS C
     Dosage: 750 MG, TID
     Route: 048
     Dates: start: 20130128
  2. PEGASYS [Suspect]
     Indication: HEPATITIS C
     Dosage: 180 ?G, QW
     Route: 058
     Dates: start: 20130128
  3. RIBAVIRIN [Suspect]
     Indication: HEPATITIS C
     Dosage: 600 MG, BID
     Route: 048
     Dates: start: 20130128
  4. OXYCODONE [Concomitant]
     Indication: BACK PAIN
     Dosage: 15 MG, TID
  5. WELLBUTRIN [Concomitant]
     Indication: BACK PAIN
     Dosage: 350 MG, QD
  6. MORPHINE [Concomitant]
     Indication: BACK PAIN
     Dosage: 30 MG, TID
  7. CLONOPINE [Concomitant]
     Indication: BACK PAIN
     Dosage: 0.5 MG, QD

REACTIONS (4)
  - Hypertension [Not Recovered/Not Resolved]
  - Pyrexia [Not Recovered/Not Resolved]
  - Rash [Not Recovered/Not Resolved]
  - Anal pruritus [Not Recovered/Not Resolved]
